FAERS Safety Report 17926297 (Version 3)
Quarter: 2021Q3

REPORT INFORMATION
  Report Type: Spontaneous
  Country: US (occurrence: US)
  Receive Date: 20200623
  Receipt Date: 20210705
  Transmission Date: 20211014
  Serious: Yes (Other)
  Sender: FDA-Public Use
  Company Number: US-TEVA-2020-US-1790497

PATIENT
  Age: 67 Year
  Sex: Female
  Weight: 87.62 kg

DRUGS (18)
  1. IRBESARTAN CAMBER [Suspect]
     Active Substance: IRBESARTAN
     Indication: HYPERTENSION
     Route: 065
     Dates: start: 20140618, end: 20140916
  2. METFORMIN [Concomitant]
     Active Substance: METFORMIN HYDROCHLORIDE
     Indication: DIABETES MELLITUS
  3. HUMALOG U?100 INSULIN [Concomitant]
     Indication: DIABETES MELLITUS
     Dosage: 100 UNIT/ML, AS DIRECTED
     Route: 058
  4. OXYBUTYNIN CHLORIDE. [Concomitant]
     Active Substance: OXYBUTYNIN CHLORIDE
     Route: 048
  5. HYDROCHLOROTHIAZIDE W/LOSARTAN TORRENT [Suspect]
     Active Substance: HYDROCHLOROTHIAZIDE\LOSARTAN
     Indication: HYPERTENSION
     Dosage: 50?12.5 MG
     Route: 065
     Dates: start: 20190602, end: 20190831
  6. LIDOCAINE?PRILOCAINE [Concomitant]
     Active Substance: LIDOCAINE\PRILOCAINE
     Dosage: 2.5%?2.5%
     Route: 061
  7. METHOCARBAMOL. [Concomitant]
     Active Substance: METHOCARBAMOL
     Route: 048
  8. SULFASALAZINE. [Concomitant]
     Active Substance: SULFASALAZINE
     Dosage: DELAYED RELEASE
     Route: 048
  9. GABAPENTIN. [Concomitant]
     Active Substance: GABAPENTIN
     Route: 048
  10. LEVOTHYROXINE. [Concomitant]
     Active Substance: LEVOTHYROXINE
     Route: 048
  11. VITAMIN D3 [Concomitant]
     Active Substance: CHOLECALCIFEROL
     Dosage: 1000 UNIT
     Route: 048
  12. IRBESARTAN SOLCO [Suspect]
     Active Substance: IRBESARTAN
     Indication: HYPERTENSION
     Route: 065
     Dates: start: 20140519, end: 20140618
  13. IRBESARTAN SOLCO [Suspect]
     Active Substance: IRBESARTAN
     Route: 065
     Dates: start: 20140908, end: 20141008
  14. HYDROCODONE?ACETAMINOPHEN [Concomitant]
     Active Substance: ACETAMINOPHEN\HYDROCODONE
     Dosage: 7.5MG?325MG
     Route: 048
  15. PANTOPRAZOLE [Concomitant]
     Active Substance: PANTOPRAZOLE
     Dosage: DELAYED RELEASE
     Route: 048
  16. IRBESARTAN TEVA [Suspect]
     Active Substance: IRBESARTAN
     Indication: HYPERTENSION
     Route: 065
     Dates: start: 20141008, end: 20141107
  17. HYDROCHLOROTHIAZIDE W/LOSARTAN LUPIN [Suspect]
     Active Substance: HYDROCHLOROTHIAZIDE\LOSARTAN
     Indication: HYPERTENSION
     Dosage: 50?12.5 MG
     Route: 065
     Dates: start: 20160209, end: 20190519
  18. ORENCIA [Concomitant]
     Active Substance: ABATACEPT
     Indication: ARTHRITIS

REACTIONS (4)
  - Hepatic cancer metastatic [Not Recovered/Not Resolved]
  - Fluid retention [Not Recovered/Not Resolved]
  - Oedema [Not Recovered/Not Resolved]
  - Cholangiocarcinoma [Not Recovered/Not Resolved]
